FAERS Safety Report 8309406-1 (Version None)
Quarter: 2012Q2

REPORT INFORMATION
  Report Type: 
  Country: None (occurrence: None)
  Receive Date: 20120424
  Receipt Date: 20120424
  Transmission Date: 20120825
  Serious: No
  Sender: FDA-Public Use
  Company Number: None

PATIENT
  Sex: Female
  Weight: 157.8518 kg

DRUGS (1)
  1. ZIPRASIDONE HCL [Suspect]
     Dosage: 80 MG 2 QHS PO
     Route: 048
     Dates: start: 20120320, end: 20120326

REACTIONS (1)
  - INSOMNIA [None]
